FAERS Safety Report 10101445 (Version 2)
Quarter: 2014Q2

REPORT INFORMATION
  Report Type: Spontaneous
  Country: US (occurrence: US)
  Receive Date: 20140424
  Receipt Date: 20140515
  Transmission Date: 20141212
  Serious: Yes (Hospitalization, Other)
  Sender: FDA-Public Use
  Company Number: US-AMGEN-USASP2014028385

PATIENT
  Age: 61 Year
  Sex: Female
  Weight: 48.53 kg

DRUGS (30)
  1. PROLIA [Suspect]
     Indication: OSTEOPOROSIS POSTMENOPAUSAL
     Dosage: 60 MG/ML, Q6MO
     Route: 058
     Dates: start: 20130924
  2. PROLIA [Suspect]
     Dosage: 60 MG/ML, Q6MO
     Route: 058
     Dates: start: 20130924
  3. AMLODIPINE BESYLATE [Concomitant]
     Dosage: 2.5 MG, BID
     Route: 048
     Dates: start: 20130304
  4. BETA GLUCAN [Concomitant]
     Dosage: 25000 UNIT, BID
     Route: 048
     Dates: start: 20130304
  5. PLAVIX [Concomitant]
     Dosage: 75 MG, QD
     Route: 048
     Dates: start: 20101223
  6. COLACE [Concomitant]
     Dosage: 100 MG, BID
     Route: 048
     Dates: start: 20130304
  7. FAMOTIDINE [Concomitant]
     Dosage: 20 MG, BID
     Route: 048
     Dates: start: 20130304
  8. NEURONTIN [Concomitant]
     Dosage: 100 MG, QHS
     Route: 048
     Dates: start: 20100809
  9. KEPPRA [Concomitant]
     Dosage: 500 MG, BID
     Route: 048
     Dates: start: 20130304
  10. LYSINE [Concomitant]
     Dosage: 500 MG, QD
     Route: 048
     Dates: start: 20130304
  11. LORATADINE [Concomitant]
     Dosage: 10 MG, QD
     Route: 048
     Dates: start: 20130304
  12. PRAVACHOL [Concomitant]
     Dosage: 80 MG, QHS
     Route: 048
     Dates: start: 20130304
  13. VITAMIN C                          /00008001/ [Concomitant]
     Dosage: 500 MG, QD
     Route: 048
     Dates: start: 20130304
  14. PAPAYA ENZYME                      /00389401/ [Concomitant]
     Dosage: UNK UNK, QD
     Route: 048
     Dates: start: 20101223
  15. PROAIR HFA [Concomitant]
     Dosage: 108 UNK, BID
     Dates: start: 20130304
  16. MILK OF MAGNESIA [Concomitant]
     Dosage: 2400 MG, AS NECESSARY
     Dates: start: 20130304
  17. METOPROLOL                         /00376903/ [Concomitant]
     Dosage: 25 MG, BID
     Route: 048
     Dates: start: 20110623
  18. LAMICTAL [Concomitant]
     Dosage: 150 MG, BID
     Route: 048
     Dates: start: 20100809
  19. SINEMET [Concomitant]
     Dosage: 25/100 MG, BID
     Route: 048
     Dates: start: 20100809
  20. PRAVASTATIN                        /00880402/ [Concomitant]
     Dosage: 80 MG, UNK
     Dates: start: 20101223
  21. LIDODERM [Concomitant]
     Dosage: 5 %, TID
     Dates: start: 20100809
  22. CRANBERRY                          /01512301/ [Concomitant]
     Dosage: 400/160 MG, QD
     Dates: start: 20100809
  23. METOPROLOL                         /00376902/ [Concomitant]
     Dosage: 25 MG, BID
     Route: 048
     Dates: start: 20100809
  24. MAGNESIUM CITRATE [Concomitant]
     Dosage: 30 MG, TID
     Route: 048
     Dates: start: 20100809
  25. VITAMIN B12                        /00056201/ [Concomitant]
     Dosage: 1000 MUG, QD
     Route: 048
     Dates: start: 20100809
  26. FOLIC ACID [Concomitant]
     Dosage: 1 MG, QD
     Route: 048
     Dates: start: 20100809
  27. OXYBUTYNIN CHLORIDE [Concomitant]
     Dosage: 10 MG, QD
     Route: 048
     Dates: start: 20100809
  28. MELATONIN [Concomitant]
     Dosage: 1 MG, QHS
     Route: 048
     Dates: start: 20100809
  29. OMEPRAZOLE [Concomitant]
     Dosage: 20 MG, QD
     Route: 048
     Dates: start: 20100809
  30. CALCIUM MAGNESIUM ZINC             /01320801/ [Concomitant]
     Dosage: 333/133/5 UNK, QHS
     Route: 048
     Dates: start: 20100809

REACTIONS (9)
  - Pyrexia [Recovering/Resolving]
  - Convulsion [Recovering/Resolving]
  - Hemiparesis [Recovering/Resolving]
  - Cerebral ischaemia [Unknown]
  - Aphasia [Unknown]
  - Dysarthria [Unknown]
  - Pneumonia [Unknown]
  - Body temperature decreased [Unknown]
  - Erythema [Unknown]
